FAERS Safety Report 13118746 (Version 3)
Quarter: 2017Q1

REPORT INFORMATION
  Report Type: Report from Study
  Country: BE (occurrence: BE)
  Receive Date: 20170116
  Receipt Date: 20170327
  Transmission Date: 20170428
  Serious: Yes (Death, Life-Threatening, Hospitalization)
  Sender: FDA-Public Use
  Company Number: BE-BAYER-2016-212705

PATIENT
  Age: 72 Year
  Sex: Male
  Weight: 59 kg

DRUGS (26)
  1. TRAMADOL. [Concomitant]
     Active Substance: TRAMADOL
     Dosage: 100 MG, QD
     Dates: start: 201601
  2. MEDROL [Concomitant]
     Active Substance: METHYLPREDNISOLONE
     Indication: PAIN
     Dosage: 8 MG, QD
     Dates: start: 201610
  3. PANTOPRAZOLE [Concomitant]
     Active Substance: PANTOPRAZOLE SODIUM
     Dosage: 40 MG, QD
     Dates: start: 20161226
  4. SERETIDE [Concomitant]
     Active Substance: FLUTICASONE PROPIONATE\SALMETEROL XINAFOATE
     Dosage: 50 ?G, BID
     Dates: start: 20161104, end: 20161113
  5. VENTOLIN [Concomitant]
     Active Substance: ALBUTEROL SULFATE
     Dosage: 100 UG/DAY
     Dates: start: 1996
  6. OXYCONTIN [Concomitant]
     Active Substance: OXYCODONE HYDROCHLORIDE
     Dosage: 20 MG, QD
     Dates: start: 201610
  7. RED BLOOD CELLS [Concomitant]
     Active Substance: HUMAN RED BLOOD CELL
     Indication: ANAEMIA
     Dosage: UNK
     Dates: start: 20161110, end: 20161110
  8. RED BLOOD CELLS [Concomitant]
     Active Substance: HUMAN RED BLOOD CELL
     Indication: ANAEMIA
     Dosage: UNK
     Dates: start: 20161113, end: 20161113
  9. CORDARONE [Concomitant]
     Active Substance: AMIODARONE HYDROCHLORIDE
     Dosage: 200 G, QD
     Dates: start: 20161225
  10. RED BLOOD CELLS [Concomitant]
     Active Substance: HUMAN RED BLOOD CELL
     Indication: ANAEMIA
     Dosage: UNK
     Dates: start: 20161109, end: 20161109
  11. CEFUROXIM [Concomitant]
     Active Substance: CEFUROXIME
     Dosage: 1.5 G, TID
     Dates: start: 20161230
  12. GLYCOPYRRONIUM BROMIDE [Concomitant]
     Active Substance: GLYCOPYRRONIUM
     Dosage: 44 UG/DAY
     Dates: start: 2010
  13. RADIUM-223 DICHLORIDE [Suspect]
     Active Substance: RADIUM RA-223 DICHLORIDE
     Indication: PROSTATE CANCER STAGE IV
     Dosage: 2960 KBQ, ONCE
     Route: 042
     Dates: start: 20161028, end: 20161028
  14. RADIUM-223 DICHLORIDE [Suspect]
     Active Substance: RADIUM RA-223 DICHLORIDE
     Indication: PROSTATE CANCER STAGE IV
     Dosage: 2630 KBQ, ONCE
     Route: 042
     Dates: start: 20161223, end: 20161223
  15. MEDROL [Concomitant]
     Active Substance: METHYLPREDNISOLONE
     Indication: PAIN
     Dosage: 32 MG, QD
     Dates: start: 20161226
  16. AUGMENTIN [Concomitant]
     Active Substance: AMOXICILLIN\CLAVULANATE POTASSIUM
     Dosage: 1500MGR/DAY
     Dates: start: 20161030, end: 20161113
  17. BISOPROLOL [Concomitant]
     Active Substance: BISOPROLOL
     Dosage: 5 MG, QD
     Dates: start: 20161114
  18. CORUNO [Concomitant]
     Active Substance: MOLSIDOMINE
     Dosage: 16 MG, QD
     Dates: start: 1996
  19. ASAFLOW [Concomitant]
     Active Substance: ASPIRIN
     Dosage: 80 MG, QD
     Dates: start: 2010
  20. RED BLOOD CELLS [Concomitant]
     Active Substance: HUMAN RED BLOOD CELL
     Indication: ANAEMIA
     Dosage: UNK
     Dates: start: 20161108, end: 20161108
  21. RADIUM-223 DICHLORIDE [Suspect]
     Active Substance: RADIUM RA-223 DICHLORIDE
     Indication: METASTASES TO BONE
     Dosage: 2920 KBQ, ONCE
     Route: 042
     Dates: start: 20161125, end: 20161125
  22. SERETIDE [Concomitant]
     Active Substance: FLUTICASONE PROPIONATE\SALMETEROL XINAFOATE
     Dosage: 50 ?G, QD
     Dates: start: 20161114
  23. NITROLINGUAL [Concomitant]
     Active Substance: NITROGLYCERIN
     Dosage: 0.4 MG, PRN
     Dates: start: 1996
  24. AUGMENTIN [Concomitant]
     Active Substance: AMOXICILLIN\CLAVULANATE POTASSIUM
     Dosage: 1 G, QID
     Dates: start: 20161225, end: 20161229
  25. SERETIDE [Concomitant]
     Active Substance: FLUTICASONE PROPIONATE\SALMETEROL XINAFOATE
     Dosage: 50 ?G, QD
     Dates: start: 1996, end: 20161103
  26. SPIRIVA [Concomitant]
     Active Substance: TIOTROPIUM BROMIDE MONOHYDRATE
     Dosage: 18 ?G, QD
     Dates: start: 20161114

REACTIONS (4)
  - General physical health deterioration [Fatal]
  - Dyspnoea [Recovered/Resolved]
  - Pneumonia [Recovered/Resolved]
  - Thrombocytopenia [Recovered/Resolved]

NARRATIVE: CASE EVENT DATE: 20161103
